FAERS Safety Report 7256241-1 (Version None)
Quarter: 2011Q1

REPORT INFORMATION
  Report Type: 
  Country: None (occurrence: None)
  Receive Date: 20110129
  Receipt Date: 20100831
  Transmission Date: 20110831
  Serious: Yes (Other)
  Sender: FDA-Public Use
  Company Number: US-ABBOTT-10P-163-0625307-00

PATIENT
  Sex: Female
  Weight: 88.984 kg

DRUGS (4)
  1. METHOTREXATE [Concomitant]
     Indication: PSORIATIC ARTHROPATHY
     Dosage: 7.5 TO 17.5 MG WEEKLY
     Dates: start: 20000101
  2. SULFASALASIN [Concomitant]
     Indication: PSORIATIC ARTHROPATHY
     Dates: start: 20090805, end: 20100101
  3. ENBREL [Concomitant]
     Indication: PSORIATIC ARTHROPATHY
     Dates: start: 20030101, end: 20081001
  4. HUMIRA [Suspect]
     Indication: PSORIATIC ARTHROPATHY
     Route: 058
     Dates: start: 20081110, end: 20090101

REACTIONS (1)
  - VULVAL CANCER [None]
